FAERS Safety Report 20743808 (Version 1)
Quarter: 2022Q2

REPORT INFORMATION
  Report Type: Spontaneous
  Country: US (occurrence: US)
  Receive Date: 20220425
  Receipt Date: 20220425
  Transmission Date: 20220721
  Serious: No
  Sender: FDA-Public Use
  Company Number: US-PFIZER INC-202101311761

PATIENT
  Age: 50 Year
  Sex: Female
  Weight: 56.7 kg

DRUGS (1)
  1. ESTRING [Suspect]
     Active Substance: ESTRADIOL
     Indication: Atrophic vulvovaginitis
     Dosage: ONE RING INSERTED ONCE EVERY THREE MONTHS
     Dates: start: 20210930, end: 20211001

REACTIONS (4)
  - Pain [Unknown]
  - Nausea [Unknown]
  - Dizziness [Unknown]
  - Muscle spasms [Unknown]

NARRATIVE: CASE EVENT DATE: 20210901
